FAERS Safety Report 22142307 (Version 1)
Quarter: 2023Q1

REPORT INFORMATION
  Report Type: Spontaneous
  Country: US (occurrence: None)
  Receive Date: 20230327
  Receipt Date: 20230327
  Transmission Date: 20230418
  Serious: No
  Sender: FDA-Public Use
  Company Number: 2023A061214

PATIENT
  Sex: Female
  Weight: 61.2 kg

DRUGS (15)
  1. CALQUENCE [Suspect]
     Active Substance: ACALABRUTINIB
     Indication: Chronic lymphocytic leukaemia
     Route: 048
  2. AMLODIPINE BESYLATE [Concomitant]
     Active Substance: AMLODIPINE BESYLATE
  3. ASPIRIN [Concomitant]
     Active Substance: ASPIRIN
  4. CALCIUM [Concomitant]
     Active Substance: CALCIUM
  5. CLOPIDIGREL BISULFATE [Concomitant]
  6. ESCITALOPRAM [Concomitant]
     Active Substance: ESCITALOPRAM OXALATE
  7. LEVOCETIRIZNE [Concomitant]
  8. MAGNESIUM CHLORIDE [Concomitant]
     Active Substance: MAGNESIUM CHLORIDE
  9. LOMOTIL [Concomitant]
     Active Substance: ATROPINE SULFATE\DIPHENOXYLATE HYDROCHLORIDE
  10. XIFAXAN [Concomitant]
     Active Substance: RIFAXIMIN
  11. ACETAMINOPHEN [Concomitant]
     Active Substance: ACETAMINOPHEN
  12. DEXTROMETHORPHAN [Concomitant]
     Active Substance: DEXTROMETHORPHAN
  13. TYLENOL [Concomitant]
     Active Substance: ACETAMINOPHEN
  14. TUMS [Concomitant]
     Active Substance: CALCIUM CARBONATE
  15. PEPCID [Concomitant]
     Active Substance: FAMOTIDINE

REACTIONS (3)
  - Flatulence [Not Recovered/Not Resolved]
  - Anal incontinence [Unknown]
  - Diarrhoea [Unknown]
